FAERS Safety Report 8862492 (Version 1)
Quarter: 2012Q4

REPORT INFORMATION
  Report Type: 
  Country: US (occurrence: US)
  Receive Date: 20121026
  Receipt Date: 20121026
  Transmission Date: 20130627
  Serious: No
  Sender: FDA-Public Use
  Company Number: US-ALLERGAN-1212402US

PATIENT
  Sex: Male

DRUGS (2)
  1. ALPHAGAN P [Suspect]
     Indication: INCREASED INTRAOCULAR PRESSURE
     Dosage: UNK
     Dates: end: 201110
  2. LUMIGAN 0.03% [Concomitant]
     Indication: INCREASED INTRAOCULAR PRESSURE
     Dosage: 2 Gtt, qhs
     Route: 047
     Dates: start: 2010

REACTIONS (2)
  - Scleral hyperaemia [Recovered/Resolved]
  - Eye swelling [Recovered/Resolved]
